FAERS Safety Report 18102347 (Version 2)
Quarter: 2020Q3

REPORT INFORMATION
  Report Type: Spontaneous
  Country: US (occurrence: US)
  Receive Date: 20200803
  Receipt Date: 20200820
  Transmission Date: 20201103
  Serious: Yes (Death)
  Sender: FDA-Public Use
  Company Number: US-ROCHE-2652644

PATIENT
  Age: 80 Year
  Sex: Male

DRUGS (1)
  1. ESBRIET [Suspect]
     Active Substance: PIRFENIDONE
     Indication: IDIOPATHIC PULMONARY FIBROSIS
     Dosage: 1 TABLET 3 TIMES DAILY ON WEEK 1, THEN 2 TABLETS 3 TIMES DAILY ON WEEK 2,  THEN 3 TABLETS 3 TIMES DA
     Route: 048
     Dates: start: 20200722

REACTIONS (1)
  - Death [Fatal]

NARRATIVE: CASE EVENT DATE: 20200725
